FAERS Safety Report 20626806 (Version 1)
Quarter: 2022Q1

REPORT INFORMATION
  Report Type: Spontaneous
  Country: US (occurrence: None)
  Receive Date: 20220322
  Receipt Date: 20220322
  Transmission Date: 20220424
  Serious: Yes (Other)
  Sender: FDA-Public Use
  Company Number: None

PATIENT
  Age: 51 Year
  Sex: Male
  Weight: 72.9 kg

DRUGS (7)
  1. DIETARY SUPPLEMENT\HEMP [Suspect]
     Active Substance: DIETARY SUPPLEMENT\HEMP
     Indication: Supplementation therapy
     Dosage: OTHER QUANTITY : 10 GUMMIES;?
     Route: 048
     Dates: start: 20220315, end: 20220321
  2. DIETARY SUPPLEMENT\HEMP [Suspect]
     Active Substance: DIETARY SUPPLEMENT\HEMP
     Indication: Immune disorder prophylaxis
  3. VITAMINS [Concomitant]
     Active Substance: VITAMINS
  4. VITAMIN C [Concomitant]
     Active Substance: ASCORBIC ACID
  5. RED YEAST [Concomitant]
     Active Substance: RED YEAST
  6. VITAMIN D [Concomitant]
     Active Substance: VITAMIN D NOS
  7. IRON [Concomitant]
     Active Substance: IRON

REACTIONS (16)
  - Dizziness [None]
  - Musculoskeletal discomfort [None]
  - Sensory disturbance [None]
  - Flushing [None]
  - Paraesthesia [None]
  - Paraesthesia [None]
  - Consciousness fluctuating [None]
  - Dyspnoea [None]
  - Pallor [None]
  - Paraesthesia [None]
  - Chills [None]
  - Cognitive disorder [None]
  - Autoscopy [None]
  - Hypoaesthesia [None]
  - Presyncope [None]
  - Product formulation issue [None]

NARRATIVE: CASE EVENT DATE: 20220321
